FAERS Safety Report 23123902 (Version 1)
Quarter: 2023Q4

REPORT INFORMATION
  Report Type: Report from Study
  Country: RU (occurrence: RU)
  Receive Date: 20231030
  Receipt Date: 20231030
  Transmission Date: 20240110
  Serious: Yes (Other)
  Sender: FDA-Public Use
  Company Number: RU-002147023-NVSC2023RU231189

PATIENT
  Age: 57 Year
  Sex: Female

DRUGS (1)
  1. RIBOCICLIB [Suspect]
     Active Substance: RIBOCICLIB
     Indication: Breast cancer
     Dosage: 600 MG, QD (ON DAYS 1-21)
     Route: 048
     Dates: start: 20200827

REACTIONS (2)
  - Neutropenia [Recovering/Resolving]
  - Pneumonia viral [Recovering/Resolving]

NARRATIVE: CASE EVENT DATE: 20220101
